FAERS Safety Report 6790778-4 (Version None)
Quarter: 2010Q2

REPORT INFORMATION
  Report Type: 
  Country: None (occurrence: None)
  Receive Date: 20100624
  Receipt Date: 20100616
  Transmission Date: 20101027
  Serious: Yes (Other)
  Sender: FDA-Public Use
  Company Number: US-PFIZER INC-2010075303

PATIENT
  Sex: Male
  Weight: 90.703 kg

DRUGS (6)
  1. LIPITOR [Suspect]
     Indication: HYPERCHOLESTEROLAEMIA
     Dosage: 20 MG, ONCE
     Route: 048
     Dates: start: 20100613
  2. ATACAND [Concomitant]
     Dosage: UNK
  3. NORVASC [Concomitant]
     Dosage: UNK
  4. ECOTRIN [Concomitant]
     Dosage: UNK
  5. TENORETIC 100 [Concomitant]
     Dosage: UNK
  6. PLAVIX [Concomitant]
     Dosage: UNK

REACTIONS (4)
  - CHILLS [None]
  - FATIGUE [None]
  - MYALGIA [None]
  - SWOLLEN TONGUE [None]
